FAERS Safety Report 20818272 (Version 1)
Quarter: 2022Q2

REPORT INFORMATION
  Report Type: Report from Study
  Country: US (occurrence: None)
  Receive Date: 20220512
  Receipt Date: 20220512
  Transmission Date: 20220721
  Serious: Yes (Hospitalization)
  Sender: FDA-Public Use
  Company Number: US-ROCHE-3093681

PATIENT
  Age: 68 Year
  Sex: Female

DRUGS (1)
  1. BEVACIZUMAB [Suspect]
     Active Substance: BEVACIZUMAB
     Indication: Fallopian tube cancer
     Dosage: OVER30-90MINUTES ONDAY1OF CYCLES 2
     Route: 042
     Dates: start: 20130508, end: 20130709

REACTIONS (3)
  - Enteritis infectious [Unknown]
  - Duodenal perforation [Unknown]
  - Pyrexia [Unknown]

NARRATIVE: CASE EVENT DATE: 20130717
